FAERS Safety Report 14158890 (Version 2)
Quarter: 2018Q1

REPORT INFORMATION
  Report Type: Spontaneous
  Country: GB (occurrence: GB)
  Receive Date: 20171103
  Receipt Date: 20180118
  Transmission Date: 20180508
  Serious: Yes (Hospitalization, Other)
  Sender: FDA-Public Use
  Company Number: GB-BAYER-2017-207719

PATIENT
  Age: 55 Year
  Sex: Male

DRUGS (1)
  1. BETAFERON [Suspect]
     Active Substance: INTERFERON BETA-1B
     Indication: MULTIPLE SCLEROSIS
     Dosage: 250 ?G (8MIU) IN 1 ML QOD
     Route: 058
     Dates: start: 20170615, end: 2017

REACTIONS (3)
  - Gait inability [None]
  - Muscle spasms [None]
  - Diabetes mellitus [None]

NARRATIVE: CASE EVENT DATE: 2017
